FAERS Safety Report 8599079-5 (Version None)
Quarter: 2012Q3

REPORT INFORMATION
  Report Type: 
  Country: None (occurrence: None)
  Receive Date: 20120816
  Receipt Date: 20120803
  Transmission Date: 20120928
  Serious: Yes (Other)
  Sender: FDA-Public Use
  Company Number: AU-ROCHE-1101187

PATIENT

DRUGS (7)
  1. VINCRISTINE [Concomitant]
     Indication: NON-HODGKIN'S LYMPHOMA
  2. PREDNISOLONE [Concomitant]
     Indication: NON-HODGKIN'S LYMPHOMA
  3. IFOSFAMIDE [Concomitant]
     Indication: NON-HODGKIN'S LYMPHOMA
  4. CYCLOPHOSPHAMIDE [Concomitant]
     Indication: NON-HODGKIN'S LYMPHOMA
  5. CARBOPLATIN [Concomitant]
     Indication: NON-HODGKIN'S LYMPHOMA
  6. MABTHERA [Suspect]
     Indication: NON-HODGKIN'S LYMPHOMA
  7. ETOPOSIDE [Concomitant]
     Indication: NON-HODGKIN'S LYMPHOMA

REACTIONS (1)
  - LYMPHOMA TRANSFORMATION [None]
